FAERS Safety Report 7720915-6 (Version None)
Quarter: 2011Q3

REPORT INFORMATION
  Report Type: 
  Country: None (occurrence: None)
  Receive Date: 20110825
  Receipt Date: 20110808
  Transmission Date: 20111222
  Serious: Yes (Hospitalization)
  Sender: FDA-Public Use
  Company Number: 15953383

PATIENT
  Age: 24 Year
  Sex: Female

DRUGS (2)
  1. WARFARIN SODIUM [Suspect]
     Indication: DEEP VEIN THROMBOSIS
  2. CORTICOSTEROID [Suspect]

REACTIONS (2)
  - SKIN NECROSIS [None]
  - INTESTINAL ISCHAEMIA [None]
